FAERS Safety Report 16803316 (Version 1)
Quarter: 2019Q3

REPORT INFORMATION
  Report Type: Spontaneous
  Country: US (occurrence: US)
  Receive Date: 20190913
  Receipt Date: 20190913
  Transmission Date: 20191005
  Serious: Yes (Other)
  Sender: FDA-Public Use
  Company Number: US-ROCHE-2280059

PATIENT
  Sex: Male

DRUGS (4)
  1. ENTRECTINIB [Suspect]
     Active Substance: ENTRECTINIB
     Dosage: 200 (UNIT NOT REPORTED)
     Route: 048
     Dates: start: 2018, end: 2018
  2. ENTRECTINIB [Suspect]
     Active Substance: ENTRECTINIB
     Dosage: 200 (UNIT NOT REPORTED)
     Route: 048
     Dates: start: 2018, end: 201902
  3. ENTRECTINIB [Suspect]
     Active Substance: ENTRECTINIB
     Indication: GLIOBLASTOMA
     Dosage: LAST DOSE OF ENTRECTINIB WAS RECIVED ON 20/FEB/2019 VIA G-TUBE, NOW ON HOLD?300 MG
     Route: 048
     Dates: start: 20180411, end: 2018
  4. ENTRECTINIB [Suspect]
     Active Substance: ENTRECTINIB
     Dosage: 200 (UNIT NOT REPORTED)
     Route: 048
     Dates: start: 20190312, end: 20190430

REACTIONS (4)
  - Pulmonary congestion [Unknown]
  - Pneumonia aspiration [Unknown]
  - Respiratory syncytial virus infection [Recovered/Resolved]
  - Cerebrovascular accident [Unknown]

NARRATIVE: CASE EVENT DATE: 2019
